FAERS Safety Report 7212339-5 (Version None)
Quarter: 2011Q1

REPORT INFORMATION
  Report Type: 
  Country: None (occurrence: None)
  Receive Date: 20110106
  Receipt Date: 20101230
  Transmission Date: 20110831
  Serious: Yes (Hospitalization)
  Sender: FDA-Public Use
  Company Number: US-AMGEN-USASP2010008428

PATIENT

DRUGS (4)
  1. ENBREL [Suspect]
     Indication: PSORIATIC ARTHROPATHY
     Dosage: 50 MG, QWK
     Dates: start: 20040301
  2. REMICADE [Concomitant]
  3. ENBREL [Suspect]
     Indication: PSORIASIS
  4. METHOTREXATE [Concomitant]

REACTIONS (6)
  - PSORIASIS [None]
  - PSORIATIC ARTHROPATHY [None]
  - NASAL CONGESTION [None]
  - NASAL DISCOMFORT [None]
  - DRY THROAT [None]
  - HISTOPLASMOSIS [None]
